FAERS Safety Report 8914911 (Version 1)
Quarter: 2012Q4

REPORT INFORMATION
  Report Type: Report from Study
  Country: FR (occurrence: FR)
  Receive Date: 20121116
  Receipt Date: 20121116
  Transmission Date: 20130627
  Serious: Yes (Hospitalization)
  Sender: FDA-Public Use
  Company Number: FR-B.I. PHARMACEUTICALS,INC./RIDGEFIELD-2012-FF-01624FF

PATIENT
  Age: 60 Year
  Sex: Male
  Weight: 55 kg

DRUGS (4)
  1. BIBW-2992 [Suspect]
     Indication: LUNG ADENOCARCINOMA
     Dosage: 40 mg
     Route: 048
     Dates: start: 20120316, end: 20121109
  2. GEMCITABINE [Suspect]
     Indication: LUNG ADENOCARCINOMA
     Dosage: 1000mg/m2
     Route: 048
     Dates: start: 20120315, end: 20120705
  3. OXYCONTIN [Concomitant]
     Dosage: 10 mg
     Route: 048
     Dates: start: 20121022
  4. OXYNORM [Concomitant]
     Dosage: 5 mg
     Route: 048
     Dates: start: 20121022

REACTIONS (1)
  - Pulmonary embolism [Not Recovered/Not Resolved]
